FAERS Safety Report 10777105 (Version 2)
Quarter: 2015Q1

REPORT INFORMATION
  Report Type: Spontaneous
  Country: US (occurrence: US)
  Receive Date: 20150209
  Receipt Date: 20150304
  Transmission Date: 20150721
  Serious: No
  Sender: FDA-Public Use
  Company Number: US-PFIZER INC-2015050250

PATIENT
  Age: 53 Year
  Sex: Male
  Weight: 100 kg

DRUGS (4)
  1. LEFLUNOMIDE. [Concomitant]
     Active Substance: LEFLUNOMIDE
     Dosage: 20 MG, 1X/DAY
  2. ULORIC [Concomitant]
     Active Substance: FEBUXOSTAT
     Dosage: 80 MG, 1X/DAY
  3. MOBIC [Concomitant]
     Active Substance: MELOXICAM
     Dosage: 15 MG, 1X/DAY
  4. XELJANZ [Suspect]
     Active Substance: TOFACITINIB CITRATE
     Indication: RHEUMATOID ARTHRITIS
     Dosage: 5 MG, 2X/DAY
     Dates: start: 201501

REACTIONS (2)
  - Hypoaesthesia [Recovered/Resolved]
  - Paraesthesia [Recovered/Resolved]
